FAERS Safety Report 9867685 (Version 1)
Quarter: 2014Q1

REPORT INFORMATION
  Report Type: Report from Study
  Country: US (occurrence: US)
  Receive Date: 20140204
  Receipt Date: 20140204
  Transmission Date: 20141002
  Serious: Yes (Death, Hospitalization)
  Sender: FDA-Public Use
  Company Number: US-009507513-1402USA000172

PATIENT
  Age: 64 Year
  Sex: Male
  Weight: 71.5 kg

DRUGS (5)
  1. TEMODAR [Suspect]
     Indication: GLIOBLASTOMA
     Dosage: 300 MG, UNK
     Route: 048
     Dates: start: 20130226, end: 20131202
  2. HEXADROL TABLETS [Concomitant]
     Dosage: UNK
     Route: 048
  3. PANTOPRAZOLE [Concomitant]
     Dosage: UNK
  4. FONDAPARINUX SODIUM [Concomitant]
     Dosage: UNK
     Dates: end: 20140117
  5. LEVETIRACETAM [Concomitant]
     Dosage: UNK

REACTIONS (2)
  - Pulmonary embolism [Fatal]
  - Hyponatraemia [Recovering/Resolving]
